FAERS Safety Report 24761759 (Version 2)
Quarter: 2024Q4

REPORT INFORMATION
  Report Type: Report from Study
  Country: CA (occurrence: CA)
  Receive Date: 20241220
  Receipt Date: 20241224
  Transmission Date: 20250115
  Serious: Yes (Death, Hospitalization)
  Sender: ABBVIE
  Company Number: CA-ABBVIE-6053002

PATIENT
  Age: 65 Year
  Sex: Male

DRUGS (30)
  1. VENETOCLAX [Suspect]
     Active Substance: VENETOCLAX
     Indication: Acute myeloid leukaemia
     Route: 048
     Dates: start: 20241017, end: 20241017
  2. VENETOCLAX [Suspect]
     Active Substance: VENETOCLAX
     Indication: Acute myeloid leukaemia
     Route: 048
     Dates: start: 20241018, end: 20241018
  3. VENETOCLAX [Suspect]
     Active Substance: VENETOCLAX
     Indication: Acute myeloid leukaemia
     Route: 048
     Dates: start: 20241019, end: 20241023
  4. VENETOCLAX [Suspect]
     Active Substance: VENETOCLAX
     Indication: Acute myeloid leukaemia
     Route: 048
     Dates: start: 20241118, end: 20241201
  5. HYDROMORPHONE [Concomitant]
     Active Substance: HYDROMORPHONE
     Indication: Pain
     Dosage: DOSING FREQUENCY:PRN LAST ADMIN DATE: NOV 2024
     Route: 048
     Dates: start: 20241115
  6. HYDROMORPHONE [Concomitant]
     Active Substance: HYDROMORPHONE
     Indication: Pain
     Dosage: DOSING FREQUENCY:PRN
     Route: 042
     Dates: start: 20241118, end: 20241118
  7. AZACITIDINE [Suspect]
     Active Substance: AZACITIDINE
     Indication: Product used for unknown indication
     Route: 065
     Dates: start: 20241017, end: 20241023
  8. AZACITIDINE [Suspect]
     Active Substance: AZACITIDINE
     Indication: Product used for unknown indication
     Route: 065
     Dates: start: 20241118, end: 20241124
  9. COVID-19 Vaccine [Concomitant]
     Indication: COVID-19 immunisation
     Dosage: TOOK 8 DOSAGE
     Route: 050
  10. RASBURICASE [Concomitant]
     Active Substance: RASBURICASE
     Indication: Prophylaxis
     Route: 042
     Dates: start: 20241016, end: 20241016
  11. PREDNISONE [Concomitant]
     Active Substance: PREDNISONE
     Indication: Muscular weakness
     Route: 048
     Dates: start: 20241017, end: 20241020
  12. PREDNISONE [Concomitant]
     Active Substance: PREDNISONE
     Indication: Muscular weakness
     Route: 048
     Dates: start: 20241021, end: 20241022
  13. PREDNISONE [Concomitant]
     Active Substance: PREDNISONE
     Indication: Muscular weakness
     Route: 048
     Dates: start: 20241023, end: 20241024
  14. PREDNISONE [Concomitant]
     Active Substance: PREDNISONE
     Indication: Muscular weakness
     Dosage: LAST ADMIN DATE: NOV 2024
     Route: 048
     Dates: start: 20241114
  15. PREDNISONE [Concomitant]
     Active Substance: PREDNISONE
     Indication: Muscular weakness
     Route: 048
     Dates: start: 20241121, end: 20241127
  16. PREDNISONE [Concomitant]
     Active Substance: PREDNISONE
     Indication: Muscular weakness
     Route: 048
     Dates: start: 20241128, end: 20241204
  17. PREDNISONE [Concomitant]
     Active Substance: PREDNISONE
     Indication: Muscular weakness
     Route: 048
     Dates: start: 20241205, end: 20241211
  18. PREDNISONE [Concomitant]
     Active Substance: PREDNISONE
     Indication: Muscular weakness
     Route: 048
     Dates: start: 20241212, end: 20241218
  19. PANTOPRAZOLE [Concomitant]
     Active Substance: PANTOPRAZOLE
     Indication: Gastrooesophageal reflux disease
     Route: 048
     Dates: start: 20241016, end: 20241024
  20. LEVOMEPROMAZINE [Concomitant]
     Active Substance: LEVOMEPROMAZINE
     Indication: Sleep disorder
     Route: 048
     Dates: start: 20241014, end: 20241023
  21. DIMENHYDRINATE [Concomitant]
     Active Substance: DIMENHYDRINATE
     Indication: Nausea
     Dosage: TIME INTERVAL: AS NECESSARY
     Dates: start: 20241031, end: 20241213
  22. SEPTRA [Concomitant]
     Active Substance: SULFAMETHOXAZOLE\TRIMETHOPRIM
     Indication: Prophylaxis
     Dosage: DOSE FREQUENCY- MONDAY, WEDNESDAY, FRIDAY
     Route: 048
     Dates: start: 20241115, end: 20241218
  23. ASPIRIN [Concomitant]
     Active Substance: ASPIRIN
     Indication: Portal vein thrombosis
     Route: 048
     Dates: end: 20241218
  24. HYDROXYUREA [Concomitant]
     Active Substance: HYDROXYUREA
     Indication: Thrombosis prophylaxis
     Dates: start: 20100311, end: 20241218
  25. ONDANSETRON [Concomitant]
     Active Substance: ONDANSETRON
     Indication: Nausea
     Route: 048
     Dates: start: 20241017, end: 20241023
  26. ALLOPURINOL [Concomitant]
     Active Substance: ALLOPURINOL
     Indication: Prophylaxis
     Route: 048
     Dates: start: 20241013, end: 20241026
  27. LEVOFLOXACIN [Concomitant]
     Active Substance: LEVOFLOXACIN
     Indication: Infection prophylaxis
     Dates: start: 20241017, end: 20241218
  28. VALACYCLOVIR [Concomitant]
     Active Substance: VALACYCLOVIR HYDROCHLORIDE
     Indication: Infection prophylaxis
     Route: 048
     Dates: start: 20241013, end: 20241218
  29. CIPROFLOXACIN [Concomitant]
     Active Substance: CIPROFLOXACIN
     Indication: Infection prophylaxis
     Route: 048
     Dates: start: 20241013, end: 20241016
  30. FLUCONAZOLE [Concomitant]
     Active Substance: FLUCONAZOLE
     Indication: Infection prophylaxis
     Route: 048
     Dates: start: 20241013, end: 20241016

REACTIONS (1)
  - Pain [Fatal]

NARRATIVE: CASE EVENT DATE: 20241212
